FAERS Safety Report 4651687-X (Version None)
Quarter: 2005Q2

REPORT INFORMATION
  Report Type: 
  Country: None (occurrence: None)
  Receive Date: 20050404
  Receipt Date: 20041130
  Transmission Date: 20051028
  Serious: No
  Sender: FDA-Public Use
  Company Number: USA041184788

PATIENT
  Sex: Female

DRUGS (2)
  1. CYMBALTA [Suspect]
     Dosage: 60 MG
  2. MIGRAINE MEDICINE [Concomitant]

REACTIONS (1)
  - HEART RATE INCREASED [None]
